FAERS Safety Report 7748497-3 (Version None)
Quarter: 2011Q3

REPORT INFORMATION
  Report Type: 
  Country: None (occurrence: None)
  Receive Date: 20110914
  Receipt Date: 20110831
  Transmission Date: 20111222
  Serious: No
  Sender: FDA-Public Use
  Company Number: US-BIOGENIDEC-2010BI041932

PATIENT
  Age: 47 Year
  Sex: Female

DRUGS (2)
  1. TYSABRI [Suspect]
     Indication: MULTIPLE SCLEROSIS
     Route: 042
     Dates: start: 20071119, end: 20101110
  2. TYSABRI [Suspect]
     Route: 042
     Dates: start: 20110819

REACTIONS (6)
  - COUGH [None]
  - HYPOAESTHESIA [None]
  - DRUG INEFFECTIVE [None]
  - COORDINATION ABNORMAL [None]
  - ASTHENIA [None]
  - MULTIPLE SCLEROSIS [None]
